FAERS Safety Report 17472083 (Version 1)
Quarter: 2020Q1

REPORT INFORMATION
  Report Type: Spontaneous
  Country: US (occurrence: US)
  Receive Date: 20200228
  Receipt Date: 20200228
  Transmission Date: 20200409
  Serious: No
  Sender: FDA-Public Use
  Company Number: US-ELI_LILLY_AND_COMPANY-US202001013627

PATIENT
  Age: 34 Year
  Sex: Female

DRUGS (3)
  1. BASAGLAR [Suspect]
     Active Substance: INSULIN GLARGINE
     Indication: TYPE 2 DIABETES MELLITUS
     Dosage: 30 U, EACH EVENING (25-30 U)
     Route: 058
     Dates: start: 2016
  2. ADMELOG [Concomitant]
     Active Substance: INSULIN LISPRO
     Indication: DIABETES MELLITUS
  3. ALOGLIPTIN. [Suspect]
     Active Substance: ALOGLIPTIN
     Indication: DIABETES MELLITUS
     Dosage: UNK UNK, UNKNOWN
     Route: 065

REACTIONS (6)
  - Asthenia [Recovering/Resolving]
  - Hyperhidrosis [Recovering/Resolving]
  - Dizziness [Recovering/Resolving]
  - Nausea [Recovering/Resolving]
  - Thirst [Recovering/Resolving]
  - Pollakiuria [Recovering/Resolving]

NARRATIVE: CASE EVENT DATE: 20200129
